FAERS Safety Report 5521721-3 (Version None)
Quarter: 2007Q4

REPORT INFORMATION
  Report Type: 
  Country: None (occurrence: None)
  Receive Date: 20071120
  Receipt Date: 20071112
  Transmission Date: 20080405
  Serious: Yes (Other)
  Sender: FDA-Public Use
  Company Number: PHEH2007US14770

PATIENT
  Age: 70 Year
  Sex: Male
  Weight: 74.376 kg

DRUGS (7)
  1. ZOMETA [Suspect]
     Indication: OSTEOPOROSIS
  2. THALIDOMIDE [Concomitant]
     Indication: PROSTATE CANCER
  3. LIPITOR [Concomitant]
     Dosage: UNK, QW3
  4. CELEBREX [Concomitant]
  5. PROSCAR [Concomitant]
     Indication: PROSTATE CANCER
     Dosage: 5 MG, QD
  6. LUPRON [Concomitant]
     Indication: PROSTATE CANCER
     Dates: start: 19970401
  7. AREDIA [Suspect]
     Indication: OSTEOPOROSIS
     Dates: start: 19990101

REACTIONS (9)
  - BLOOD PARATHYROID HORMONE INCREASED [None]
  - BONE DISORDER [None]
  - FOLLICULAR THYROID CANCER [None]
  - GOITRE [None]
  - HYPERPARATHYROIDISM [None]
  - PARATHYROID TUMOUR BENIGN [None]
  - THYROIDECTOMY [None]
  - TOOTH EXTRACTION [None]
  - WOUND DEBRIDEMENT [None]
